FAERS Safety Report 25287018 (Version 1)
Quarter: 2025Q2

REPORT INFORMATION
  Report Type: Spontaneous
  Country: US (occurrence: US)
  Receive Date: 20250509
  Receipt Date: 20250509
  Transmission Date: 20250716
  Serious: No
  Sender: ALLEGIS PHARMACEUTICALS
  Company Number: US-ALLEGIS PHARMACEUTICALS, LLC-LGP202501-000005

PATIENT
  Sex: Female

DRUGS (5)
  1. IMURAN [Suspect]
     Active Substance: AZATHIOPRINE
     Route: 065
  2. VYVGART [Concomitant]
     Active Substance: EFGARTIGIMOD ALFA-FCAB
  3. CELLCEPT [Concomitant]
     Active Substance: MYCOPHENOLATE MOFETIL
  4. MESTINON [Concomitant]
     Active Substance: PYRIDOSTIGMINE BROMIDE
  5. RITUXAN [Concomitant]
     Active Substance: RITUXIMAB

REACTIONS (2)
  - Liver function test increased [Unknown]
  - Arthralgia [Unknown]
